FAERS Safety Report 24206398 (Version 1)
Quarter: 2024Q3

REPORT INFORMATION
  Report Type: Spontaneous
  Country: CN (occurrence: CN)
  Receive Date: 20240813
  Receipt Date: 20240813
  Transmission Date: 20241017
  Serious: Yes (Other)
  Sender: MERCK
  Company Number: CN-009507513-2408CHN003364

PATIENT
  Age: 61 Year
  Sex: Male

DRUGS (16)
  1. PEMBROLIZUMAB [Suspect]
     Active Substance: PEMBROLIZUMAB
     Indication: Small intestine carcinoma metastatic
     Dosage: 200 MG DAY 1, EVERY 3 WEEKS, THREE CYCLES
     Dates: start: 2021, end: 2021
  2. PEMBROLIZUMAB [Suspect]
     Active Substance: PEMBROLIZUMAB
     Indication: Sarcomatoid carcinoma
  3. PACLITAXEL [Suspect]
     Active Substance: PACLITAXEL
     Indication: Small intestine carcinoma metastatic
     Dosage: 100 MILLIGRAM/SQ. METER DAY 1, EVERY 2 WEEKS, THREE CYCLES
     Dates: start: 2021, end: 2021
  4. PACLITAXEL [Suspect]
     Active Substance: PACLITAXEL
     Indication: Sarcomatoid carcinoma
  5. OXALIPLATIN [Suspect]
     Active Substance: OXALIPLATIN
     Indication: Small intestine carcinoma metastatic
     Dosage: 85 MILLIGRAM/SQ. METER DAY 1, EVERY 2 WEEKS, THREE CYCLES
     Dates: start: 2021, end: 2021
  6. OXALIPLATIN [Suspect]
     Active Substance: OXALIPLATIN
     Indication: Sarcomatoid carcinoma
  7. LEUCOVORIN [Suspect]
     Active Substance: LEUCOVORIN\LEUCOVORIN CALCIUM
     Indication: Small intestine carcinoma metastatic
     Dosage: 400 MILLIGRAM/SQ. METER DAY 1, EVERY 2 WEEKS, THREE CYCLES
     Dates: start: 2021, end: 2021
  8. LEUCOVORIN [Suspect]
     Active Substance: LEUCOVORIN\LEUCOVORIN CALCIUM
     Indication: Sarcomatoid carcinoma
  9. FLUOROURACIL [Suspect]
     Active Substance: FLUOROURACIL
     Indication: Small intestine carcinoma metastatic
     Dosage: 1200 MILLIGRAM/SQ. METER DAY 1-DAY 2, EVERY 2 WEEKS, THREE CYCLES
     Dates: start: 2021, end: 2021
  10. FLUOROURACIL [Suspect]
     Active Substance: FLUOROURACIL
     Indication: Sarcomatoid carcinoma
  11. IRINOTECAN [Suspect]
     Active Substance: IRINOTECAN
     Indication: Small intestine carcinoma metastatic
     Dosage: 190 MILLIGRAM/SQ. METER DAY 1, EVERY 3 WEEKS
  12. IRINOTECAN [Suspect]
     Active Substance: IRINOTECAN
     Indication: Sarcomatoid carcinoma
  13. CAPECITABINE [Suspect]
     Active Substance: CAPECITABINE
     Indication: Small intestine carcinoma metastatic
     Dosage: 800 MILLIGRAM/SQ. METER TWICE A DAY, DAY 1-DAY 14, EVERY 3 WEEKS
  14. CAPECITABINE [Suspect]
     Active Substance: CAPECITABINE
     Indication: Sarcomatoid carcinoma
  15. BEVACIZUMAB [Suspect]
     Active Substance: BEVACIZUMAB
     Indication: Small intestine carcinoma metastatic
     Dosage: 7.5 MG/KG, DAY 1, EVERY 3 WEEKS
  16. BEVACIZUMAB [Suspect]
     Active Substance: BEVACIZUMAB
     Indication: Sarcomatoid carcinoma

REACTIONS (3)
  - Tumour pseudoprogression [Recovered/Resolved]
  - Adverse drug reaction [Unknown]
  - Off label use [Unknown]

NARRATIVE: CASE EVENT DATE: 20210101
